FAERS Safety Report 24801390 (Version 2)
Quarter: 2025Q1

REPORT INFORMATION
  Report Type: Spontaneous
  Country: US (occurrence: US)
  Receive Date: 20250102
  Receipt Date: 20250113
  Transmission Date: 20250409
  Serious: No
  Sender: IPSEN BIOPHARMACEUTICALS, INC.
  Company Number: US-IPSEN Group, Research and Development-2024-26640

PATIENT
  Sex: Female

DRUGS (1)
  1. DYSPORT [Suspect]
     Active Substance: ABOBOTULINUMTOXINA
     Indication: Skin cosmetic procedure
     Route: 065
     Dates: start: 20241025, end: 20241025

REACTIONS (5)
  - Nausea [Recovering/Resolving]
  - Pollakiuria [Recovering/Resolving]
  - Paraesthesia [Recovering/Resolving]
  - Vertigo [Recovering/Resolving]
  - Dizziness [Recovering/Resolving]
